FAERS Safety Report 9142305 (Version 2)
Quarter: 2013Q2

REPORT INFORMATION
  Report Type: Spontaneous
  Country: BR (occurrence: BR)
  Receive Date: 20130305
  Receipt Date: 20130404
  Transmission Date: 20140414
  Serious: Yes (Death, Hospitalization, Other)
  Sender: FDA-Public Use
  Company Number: BR-AMGEN-BRASP2013015247

PATIENT
  Age: 21 Year
  Sex: Female
  Weight: 110 kg

DRUGS (8)
  1. ENBREL [Suspect]
     Indication: PUSTULAR PSORIASIS
     Dosage: 50 MG, ONCE A WEEK
     Route: 058
     Dates: start: 201301, end: 201301
  2. ENBREL [Suspect]
     Indication: ERYTHRODERMIC PSORIASIS
  3. METHOTREXATE SODIUM [Suspect]
     Indication: PUSTULAR PSORIASIS
  4. METHOTREXATE SODIUM [Suspect]
     Indication: ERYTHRODERMIC PSORIASIS
  5. ISOTRETINOIN [Suspect]
     Indication: PUSTULAR PSORIASIS
  6. ISOTRETINOIN [Suspect]
     Indication: ERYTHRODERMIC PSORIASIS
  7. DAPSONE [Suspect]
     Indication: PUSTULAR PSORIASIS
  8. DAPSONE [Suspect]
     Indication: ERYTHRODERMIC PSORIASIS

REACTIONS (4)
  - Hypersensitivity [Unknown]
  - Cardiac arrest [Fatal]
  - Renal failure [Unknown]
  - Sepsis [Fatal]
